FAERS Safety Report 8884540 (Version 1)
Quarter: 2012Q4

REPORT INFORMATION
  Report Type: Report from Study
  Country: JP (occurrence: JP)
  Receive Date: 20121102
  Receipt Date: 20121102
  Transmission Date: 20130627
  Serious: Yes (Other)
  Sender: FDA-Public Use
  Company Number: JP-VERTEX PHARMACEUTICAL INC.-2012-023930

PATIENT
  Age: 49 Year
  Sex: Male

DRUGS (5)
  1. VX-950 [Suspect]
     Indication: HEPATITIS C
     Dosage: 2250 mg, UNK
     Route: 048
     Dates: start: 20120824
  2. RIBAVIRIN [Suspect]
     Indication: HEPATITIS C
     Dosage: 800 mg, UNK
     Dates: start: 20120824
  3. PEGINTRON                          /01543001/ [Suspect]
     Indication: HEPATITIS C
     Dosage: 1.5 ?g/kg/week
     Route: 058
     Dates: start: 20120824
  4. METOCLOPRAMIDE [Concomitant]
     Dosage: 15 mg, UNK
     Route: 048
     Dates: start: 20120827
  5. PARIET [Concomitant]
     Dosage: 10 mg, UNK
     Dates: start: 20120827

REACTIONS (1)
  - Neutrophil count decreased [Recovered/Resolved]
